FAERS Safety Report 15949629 (Version 5)
Quarter: 2019Q4

REPORT INFORMATION
  Report Type: Spontaneous
  Country: US (occurrence: US)
  Receive Date: 20190211
  Receipt Date: 20191016
  Transmission Date: 20200122
  Serious: Yes (Other)
  Sender: FDA-Public Use
  Company Number: US-ASTRAZENECA-2018SF26920

PATIENT
  Age: 820 Month
  Sex: Female
  Weight: 81.6 kg

DRUGS (22)
  1. PRILOSEC [Suspect]
     Active Substance: OMEPRAZOLE MAGNESIUM
     Dosage: 40.0MG UNKNOWN
     Route: 048
  2. DEXILANT [Suspect]
     Active Substance: DEXLANSOPRAZOLE
     Indication: ULCER
     Dosage: 60.0MG UNKNOWN
     Route: 065
     Dates: start: 20131107
  3. VITAMIN D [Concomitant]
     Active Substance: VITAMIN D NOS
     Dosage: 2000 UNIT DAILY
     Route: 048
  4. CARBIDOPA. [Concomitant]
     Active Substance: CARBIDOPA
     Dosage: 25-100 MG TAB YHREE TIMES
     Route: 048
  5. PROAIR HFA [Concomitant]
     Active Substance: ALBUTEROL SULFATE
     Dosage: 8.5G UNKNOWN
     Dates: start: 20070228
  6. NEXIUM 24HR [Suspect]
     Active Substance: ESOMEPRAZOLE MAGNESIUM
     Route: 048
     Dates: start: 201311, end: 201412
  7. PREVACID [Suspect]
     Active Substance: LANSOPRAZOLE
     Dosage: 40.0MG UNKNOWN
     Route: 065
  8. DEXILANT [Suspect]
     Active Substance: DEXLANSOPRAZOLE
     Indication: ULCER
     Route: 065
     Dates: start: 201311, end: 201412
  9. BUTALBITAL [Concomitant]
     Active Substance: BUTALBITAL
     Dosage: 50-325MG
     Route: 048
  10. CARBIDOPA. [Concomitant]
     Active Substance: CARBIDOPA
     Route: 048
  11. PRAVACHOL [Concomitant]
     Active Substance: PRAVASTATIN SODIUM
     Dosage: 40.0MG UNKNOWN
     Route: 048
     Dates: start: 20060817
  12. CELEBREX [Concomitant]
     Active Substance: CELECOXIB
     Dosage: 200.0MG UNKNOWN
     Dates: start: 20070622
  13. DEXILANT [Suspect]
     Active Substance: DEXLANSOPRAZOLE
     Indication: ULCER
     Dosage: UNKNOWN
     Route: 065
     Dates: start: 20141209
  14. PANTOPRAZOLE [Suspect]
     Active Substance: PANTOPRAZOLE
     Indication: ULCER
     Route: 065
  15. DEXILANT [Suspect]
     Active Substance: DEXLANSOPRAZOLE
     Indication: ULCER
     Dosage: UNKNOWN
     Route: 065
     Dates: start: 20131107, end: 20140207
  16. DIAZEPAM. [Concomitant]
     Active Substance: DIAZEPAM
     Route: 048
  17. CARTIA [Concomitant]
  18. PRILOSEC OTC [Suspect]
     Active Substance: OMEPRAZOLE MAGNESIUM
     Dosage: 20.0MG UNKNOWN
     Route: 048
  19. DEXILANT [Suspect]
     Active Substance: DEXLANSOPRAZOLE
     Indication: ULCER
     Dosage: UNKNOWN
     Route: 065
     Dates: start: 20131107, end: 20141209
  20. HYDROCODONE [Concomitant]
     Active Substance: HYDROCODONE
     Route: 048
  21. NEXIUM [Suspect]
     Active Substance: ESOMEPRAZOLE MAGNESIUM
     Route: 048
     Dates: start: 201311, end: 201412
  22. PREVACID 24 HR [Suspect]
     Active Substance: LANSOPRAZOLE
     Dosage: 15.0MG UNKNOWN
     Route: 065

REACTIONS (2)
  - Renal injury [Unknown]
  - Chronic kidney disease [Not Recovered/Not Resolved]

NARRATIVE: CASE EVENT DATE: 201607
